FAERS Safety Report 23446966 (Version 1)
Quarter: 2024Q1

REPORT INFORMATION
  Report Type: Spontaneous
  Country: PL (occurrence: PL)
  Receive Date: 20240126
  Receipt Date: 20240126
  Transmission Date: 20240410
  Serious: Yes (Hospitalization)
  Sender: FDA-Public Use
  Company Number: None

PATIENT
  Age: 30 Year
  Sex: Female
  Weight: 55 kg

DRUGS (1)
  1. GADOBUTROL [Suspect]
     Active Substance: GADOBUTROL
     Indication: Magnetic resonance imaging
     Dosage: 7.5 ML, ONCE
     Route: 042
     Dates: start: 20190711, end: 20190711

REACTIONS (5)
  - Erythema [Recovered/Resolved]
  - Lacrimation increased [Recovered/Resolved]
  - Conjunctival hyperaemia [Recovered/Resolved]
  - Speech disorder [Recovered/Resolved]
  - Perineal pain [Recovered/Resolved]

NARRATIVE: CASE EVENT DATE: 20190711
